FAERS Safety Report 17517119 (Version 1)
Quarter: 2020Q1

REPORT INFORMATION
  Report Type: Spontaneous
  Country: US (occurrence: US)
  Receive Date: 20200228
  Receipt Date: 20200228
  Transmission Date: 20200409
  Serious: Yes (Hospitalization)
  Sender: FDA-Public Use
  Company Number: None

PATIENT
  Sex: Male

DRUGS (11)
  1. TEMAZEPAM. [Concomitant]
     Active Substance: TEMAZEPAM
  2. A-HYDROCORT [Concomitant]
     Active Substance: HYDROCORTISONE SODIUM SUCCINATE
  3. METHOTREXATE. [Concomitant]
     Active Substance: METHOTREXATE
  4. POT CL MICRO [Concomitant]
  5. REPATHA [Suspect]
     Active Substance: EVOLOCUMAB
     Dosage: ?          OTHER FREQUENCY:Q14 DAYS;?
     Route: 058
     Dates: start: 20191217, end: 20200227
  6. SPIRONOLACTONE. [Concomitant]
     Active Substance: SPIRONOLACTONE
  7. LISINOPRIL. [Concomitant]
     Active Substance: LISINOPRIL
  8. PREGABALIN. [Concomitant]
     Active Substance: PREGABALIN
  9. FOLIC ACID. [Concomitant]
     Active Substance: FOLIC ACID
  10. TIKOSYN [Concomitant]
     Active Substance: DOFETILIDE
  11. FAMOTIDINE. [Concomitant]
     Active Substance: FAMOTIDINE

REACTIONS (1)
  - Hypertension [None]
